FAERS Safety Report 7594891-3 (Version None)
Quarter: 2011Q3

REPORT INFORMATION
  Report Type: 
  Country: None (occurrence: None)
  Receive Date: 20110707
  Receipt Date: 20110628
  Transmission Date: 20111222
  Serious: Yes (Other)
  Sender: FDA-Public Use
  Company Number: GB-SANOFI-AVENTIS-2011SA013705

PATIENT
  Age: 52 Year
  Sex: Female
  Weight: 92 kg

DRUGS (5)
  1. MULTAQ [Suspect]
     Indication: ATRIAL FIBRILLATION
     Route: 048
     Dates: start: 20101125
  2. MULTAQ [Suspect]
     Indication: ARRHYTHMIA
     Route: 048
     Dates: start: 20101125
  3. BISOPROLOL FUMARATE [Concomitant]
     Indication: ATRIAL FIBRILLATION
     Route: 048
     Dates: start: 20100901
  4. PERINDOPRIL [Concomitant]
     Route: 048
     Dates: start: 20100901
  5. WARFARIN SODIUM [Concomitant]
     Indication: ATRIAL FIBRILLATION
     Route: 048
     Dates: start: 20100901

REACTIONS (5)
  - POLYURIA [None]
  - WEIGHT DECREASED [None]
  - DIABETIC RETINOPATHY [None]
  - DIABETES MELLITUS [None]
  - POLYDIPSIA [None]
